FAERS Safety Report 7139257-5 (Version None)
Quarter: 2010Q4

REPORT INFORMATION
  Report Type: 
  Country: None (occurrence: None)
  Receive Date: 20101202
  Receipt Date: 20101202
  Transmission Date: 20110411
  Serious: No
  Sender: FDA-Public Use
  Company Number: None

PATIENT
  Age: 54 Year
  Sex: Female
  Weight: 81.6475 kg

DRUGS (3)
  1. PROPOXYPHENE HCL AND ACETAMINOPHEN [Suspect]
     Indication: KNEE ARTHROPLASTY
     Dosage: 1-2 TABLETS 4-6 HOURS PO
     Route: 048
     Dates: start: 20081102, end: 20101109
  2. PROPOXYPHENE HCL AND ACETAMINOPHEN [Suspect]
     Indication: KNEE ARTHROPLASTY
     Dosage: 1-2 TABLETS 4-6 HOURS PO
     Route: 048
     Dates: start: 20101109, end: 20101109
  3. . [Concomitant]

REACTIONS (4)
  - DIZZINESS [None]
  - FEELING ABNORMAL [None]
  - MALAISE [None]
  - PRODUCT QUALITY ISSUE [None]
